FAERS Safety Report 8015546-7 (Version None)
Quarter: 2011Q4

REPORT INFORMATION
  Report Type: 
  Country: None (occurrence: None)
  Receive Date: 20111230
  Receipt Date: 20111219
  Transmission Date: 20120403
  Serious: Yes (Life-Threatening, Hospitalization, Other)
  Sender: FDA-Public Use
  Company Number: DE-RANBAXY-2011RR-51342

PATIENT
  Age: 38 Year
  Sex: Male
  Weight: 89 kg

DRUGS (2)
  1. IBUPROFEN [Suspect]
     Indication: HEADACHE
     Dosage: 400 MG, BID
     Route: 048
     Dates: start: 20110801, end: 20110914
  2. ACETAMINOPHEN [Suspect]
     Indication: HEADACHE
     Dosage: 500 MG, BID
     Route: 048
     Dates: start: 20090101, end: 20110915

REACTIONS (1)
  - RENAL FAILURE ACUTE [None]
